FAERS Safety Report 7022717-5 (Version None)
Quarter: 2010Q3

REPORT INFORMATION
  Report Type: 
  Country: None (occurrence: None)
  Receive Date: 20100930
  Receipt Date: 20100924
  Transmission Date: 20110219
  Serious: Yes (Death, Hospitalization)
  Sender: FDA-Public Use
  Company Number: A0835838A

PATIENT
  Age: 78 Year
  Sex: Male
  Weight: 95 kg

DRUGS (16)
  1. AVANDIA [Suspect]
     Indication: DIABETES MELLITUS
     Dosage: 4MG PER DAY
     Route: 048
     Dates: start: 20050401, end: 20060901
  2. CIMETIDINE [Concomitant]
  3. NITROGLYCERIN [Concomitant]
  4. AMITRIPTYLINE [Concomitant]
  5. ALBUTEROL [Concomitant]
  6. ALLOPURINOL [Concomitant]
  7. DIGOXIN [Concomitant]
  8. NORVASC [Concomitant]
  9. ATENOLOL [Concomitant]
  10. PREDNISONE [Concomitant]
  11. SIMVASTATIN [Concomitant]
  12. GEMFIBROZIL [Concomitant]
  13. ISORDIL [Concomitant]
  14. NEURONTIN [Concomitant]
  15. LASIX [Concomitant]
  16. ASPIRIN [Concomitant]

REACTIONS (5)
  - CARDIAC FAILURE [None]
  - CEREBROVASCULAR ACCIDENT [None]
  - CONDITION AGGRAVATED [None]
  - PLEURAL EFFUSION [None]
  - SYNCOPE [None]
